FAERS Safety Report 21082420 (Version 5)
Quarter: 2022Q3

REPORT INFORMATION
  Report Type: Report from Study
  Country: US (occurrence: US)
  Receive Date: 20220714
  Receipt Date: 20220926
  Transmission Date: 20221027
  Serious: Yes (Other)
  Sender: FDA-Public Use
  Company Number: US-PFIZER INC-PV202200006992

PATIENT
  Age: 32 Year
  Sex: Female

DRUGS (7)
  1. SILDENAFIL CITRATE [Suspect]
     Active Substance: SILDENAFIL CITRATE
     Indication: Pulmonary hypertension
     Dosage: 80 MG, 3X/DAY
     Dates: start: 202008
  2. AMBRISENTAN [Suspect]
     Active Substance: AMBRISENTAN
     Indication: Pulmonary hypertension
     Dosage: 10 MG, 1X/DAY
     Dates: start: 20171104
  3. AMBRISENTAN [Suspect]
     Active Substance: AMBRISENTAN
     Dosage: 10 MG, DAILY
     Dates: start: 201805
  4. TYVASO [Suspect]
     Active Substance: TREPROSTINIL
     Indication: Pulmonary hypertension
     Dosage: 108 UG, 4X/DAY
     Dates: start: 201704
  5. TYVASO [Suspect]
     Active Substance: TREPROSTINIL
     Dosage: 18 UG, 4X/DAY
     Dates: start: 202111, end: 2022
  6. TREPROSTINIL [Suspect]
     Active Substance: TREPROSTINIL
     Indication: Pulmonary hypertension
     Dosage: 12.1 MG (12.1MG, Q1 MINUTE)
     Dates: start: 20220702
  7. TREPROSTINIL [Suspect]
     Active Substance: TREPROSTINIL
     Dosage: 18.7 MG (18.7MG, Q1 MINUTE)
     Dates: start: 20220702

REACTIONS (13)
  - Drug ineffective [Not Recovered/Not Resolved]
  - Headache [Not Recovered/Not Resolved]
  - Dizziness [Not Recovered/Not Resolved]
  - Condition aggravated [Not Recovered/Not Resolved]
  - Catheterisation cardiac [Recovered/Resolved]
  - Off label use [Unknown]
  - Diarrhoea [Not Recovered/Not Resolved]
  - Nausea [Unknown]
  - Dizziness [Unknown]
  - Cyanosis [Unknown]
  - Pain in jaw [Not Recovered/Not Resolved]
  - Administration site pain [Not Recovered/Not Resolved]
  - Dyspnoea [Not Recovered/Not Resolved]

NARRATIVE: CASE EVENT DATE: 20220101
